FAERS Safety Report 5080828-8 (Version None)
Quarter: 2006Q3

REPORT INFORMATION
  Report Type: 
  Country: None (occurrence: None)
  Receive Date: 20060811
  Receipt Date: 20060714
  Transmission Date: 20061208
  Serious: Yes (Death, Life-Threatening, Hospitalization)
  Sender: FDA-Public Use
  Company Number: 2006061473

PATIENT
  Age: 76 Year
  Sex: Female

DRUGS (10)
  1. BEXTRA [Suspect]
     Indication: RHEUMATOID ARTHRITIS
     Dosage: 20 MG (20 MG, 1 IN 1 D)
     Dates: start: 20020726, end: 20050201
  2. MEDROL ACETATE [Concomitant]
  3. CELECOXIB [Concomitant]
  4. PROCARDIA [Concomitant]
  5. PREVACID [Concomitant]
  6. PLAQUENIL [Concomitant]
  7. NIFEREX (POLYSACCHARIDE-IRON COMPLEX) [Concomitant]
  8. LASIX [Concomitant]
  9. DARVOCET [Concomitant]
  10. ALBUTEROL SPIROS [Concomitant]

REACTIONS (15)
  - ANAEMIA [None]
  - ARTERIAL OCCLUSIVE DISEASE [None]
  - ARTERIOSCLEROSIS [None]
  - CARDIO-RESPIRATORY ARREST [None]
  - CARDIOMEGALY [None]
  - CELLULITIS [None]
  - CEREBRAL ARTERY OCCLUSION [None]
  - DIABETES MELLITUS [None]
  - GRANULOMA [None]
  - HYPERTENSION [None]
  - MENTAL STATUS CHANGES [None]
  - MYOCARDIAL INFARCTION [None]
  - TACHYCARDIA [None]
  - VASCULAR GRAFT COMPLICATION [None]
  - WOUND INFECTION [None]
